FAERS Safety Report 17533805 (Version 1)
Quarter: 2020Q1

REPORT INFORMATION
  Report Type: Spontaneous
  Country: ES (occurrence: ES)
  Receive Date: 20200312
  Receipt Date: 20200312
  Transmission Date: 20200409
  Serious: Yes (Death)
  Sender: FDA-Public Use
  Company Number: ES-MYLANLABS-2019M1118383

PATIENT
  Age: 50 Year
  Sex: Female

DRUGS (2)
  1. BOREA [Suspect]
     Active Substance: MEGESTROL ACETATE
     Indication: CHEMOTHERAPY
     Dosage: EVERY12 H DAYS 1-14
     Dates: start: 20090602
  2. TAMOXIFEN [Suspect]
     Active Substance: TAMOXIFEN
     Indication: CANCER HORMONAL THERAPY
     Dosage: 10 MILLIGRAM (EVERY12 H DAYS 15-28 (28 DAYS CYCLES)
     Dates: start: 20090602

REACTIONS (2)
  - Off label use [Unknown]
  - Vertebrobasilar insufficiency [Fatal]

NARRATIVE: CASE EVENT DATE: 20130606
